FAERS Safety Report 9006198 (Version 1)
Quarter: 2013Q1

REPORT INFORMATION
  Report Type: Spontaneous
  Country: US (occurrence: US)
  Receive Date: 20130110
  Receipt Date: 20130110
  Transmission Date: 20140127
  Serious: Yes (Other)
  Sender: FDA-Public Use
  Company Number: US-009507513-1301USA001636

PATIENT
  Age: 81 Year
  Sex: Female

DRUGS (14)
  1. MONTELUKAST SODIUM [Suspect]
     Dosage: 10 MG, UNK
  2. TIZANIDINE HYDROCHLORIDE [Concomitant]
     Indication: FIBROMYALGIA
  3. EFFEXOR XR [Concomitant]
     Indication: ILL-DEFINED DISORDER
  4. AMBIEN [Concomitant]
  5. ACTONEL [Concomitant]
  6. HYDROCODONE [Concomitant]
  7. OXYCONTIN [Concomitant]
  8. NEXIUM [Concomitant]
  9. BIAXIN [Concomitant]
  10. PREMARIN [Suspect]
     Dosage: 0.625 MG, UNK
  11. ALPRAZOLAM [Suspect]
     Dosage: 0.25 MG, UNK
  12. ARTHROTEC [Suspect]
  13. MEDROL [Suspect]
  14. LYRICA [Suspect]
     Dosage: 150 MG (50 MG, 3 IN 1 D)

REACTIONS (5)
  - Upper respiratory tract infection [Unknown]
  - Unevaluable event [Unknown]
  - Pain [Unknown]
  - Movement disorder [Unknown]
  - Disorientation [Unknown]
